FAERS Safety Report 9643449 (Version 1)
Quarter: 2013Q4

REPORT INFORMATION
  Report Type: Spontaneous
  Country: US (occurrence: US)
  Receive Date: 20131024
  Receipt Date: 20131024
  Transmission Date: 20140711
  Serious: No
  Sender: FDA-Public Use
  Company Number: US-BAYER-2013-129097

PATIENT
  Sex: Female

DRUGS (3)
  1. ALEVE CAPLET [Suspect]
     Dosage: 1 OR 2 DAILY, SOMETIMES 2 AT ONCE
  2. ADVIL [Concomitant]
  3. OMEPRAZOLE [Concomitant]

REACTIONS (2)
  - Gastrooesophageal reflux disease [None]
  - Incorrect drug administration duration [None]
